FAERS Safety Report 8562396 (Version 3)
Quarter: 2012Q4

REPORT INFORMATION
  Report Type: 
  Country: US (occurrence: None)
  Receive Date: 20120509
  Receipt Date: 20120905
  Transmission Date: 20130627
  Serious: Yes (Hospitalization, Other)
  Sender: FDA-Public Use
  Company Number: AUR-APL-2012-02082

PATIENT
  Age: 58 Year
  Sex: Male

DRUGS (7)
  1. LEVOFLOXACIN [Suspect]
     Indication: OTITIS MEDIA
  2. LEVOFLOXACIN [Suspect]
     Indication: CELLULITIS
  3. SIMVASTATIN [Suspect]
     Indication: HYPERLIPIDAEMIA
  4. SIMVASTATIN [Suspect]
     Indication: OBESITY
  5. PRINZIDE [Concomitant]
  6. AMOXICILLIN/CLAVULANIC ACID (SPEKTRAMOX /02043401/) [Concomitant]
  7. CEFDINIR [Concomitant]

REACTIONS (3)
  - Tendonitis [None]
  - Arthralgia [None]
  - Abasia [None]
